FAERS Safety Report 8347942-2 (Version None)
Quarter: 2012Q2

REPORT INFORMATION
  Report Type: 
  Country: None (occurrence: None)
  Receive Date: 20120509
  Receipt Date: 20120424
  Transmission Date: 20120825
  Serious: Yes (Death)
  Sender: FDA-Public Use
  Company Number: US-WATSON-2012-07229

PATIENT
  Age: 18 Year
  Sex: Female

DRUGS (2)
  1. PHENELZINE SULFATE [Suspect]
     Indication: DEPRESSION
     Dosage: UNK
     Route: 065
  2. MEPERIDINE HCL [Suspect]
     Indication: AGITATION
     Dosage: UNK
     Route: 065

REACTIONS (2)
  - SEROTONIN SYNDROME [None]
  - CONDITION AGGRAVATED [None]
